FAERS Safety Report 10420247 (Version 1)
Quarter: 2014Q3

REPORT INFORMATION
  Report Type: Report from Study
  Country: US (occurrence: None)
  Receive Date: 20140804
  Receipt Date: 20140804
  Transmission Date: 20150326
  Serious: Yes (Other)
  Sender: FDA-Public Use
  Company Number: 2013US008732

PATIENT
  Age: 54 Year
  Sex: Female
  Weight: 54.4 kg

DRUGS (13)
  1. TOPAMAX [Concomitant]
     Active Substance: TOPIRAMATE
  2. VITAMIN D?/00107901/ (ERGOCALCIFEROL) [Concomitant]
  3. B-12 SHOTS [Concomitant]
  4. WELLBUTRIN XL [Concomitant]
     Active Substance: BUPROPION HYDROCHLORIDE
  5. ADVAIR DISKUS [Concomitant]
     Active Substance: FLUTICASONE PROPIONATE\SALMETEROL XINAFOATE
  6. MONTELUKAST [Concomitant]
     Active Substance: MONTELUKAST SODIUM
  7. WARFARIN [Concomitant]
     Active Substance: WARFARIN
  8. CLONAZEPAM. [Concomitant]
     Active Substance: CLONAZEPAM
  9. HIDROCORTIZON (HYDROCORTISONE ACETATE) [Concomitant]
  10. GLASSIA [Suspect]
     Active Substance: .ALPHA.1-PROTEINASE INHIBITOR HUMAN
     Indication: ALPHA-1 ANTI-TRYPSIN DEFICIENCY
     Dosage: 3000+/-10% WEEKLY, INTRAVENOUS
     Route: 042
     Dates: start: 20110301
  11. RESTASIS (CICLOSPORIN) [Concomitant]
  12. DETROL LA [Concomitant]
     Active Substance: TOLTERODINE TARTRATE
  13. PRN [Concomitant]

REACTIONS (1)
  - Deep vein thrombosis [None]

NARRATIVE: CASE EVENT DATE: 20130527
